FAERS Safety Report 7524336-0 (Version None)
Quarter: 2011Q2

REPORT INFORMATION
  Report Type: 
  Country: None (occurrence: None)
  Receive Date: 20110606
  Receipt Date: 20110531
  Transmission Date: 20111010
  Serious: No
  Sender: FDA-Public Use
  Company Number: US-BIOGENIDEC-2011BI020261

PATIENT
  Age: 58 Year
  Sex: Female

DRUGS (4)
  1. TYSABRI [Suspect]
     Indication: MULTIPLE SCLEROSIS
     Route: 042
     Dates: start: 20110526
  2. TYSABRI [Suspect]
     Route: 042
     Dates: start: 20080118, end: 20101028
  3. AVONEX [Concomitant]
     Indication: MULTIPLE SCLEROSIS
     Route: 030
     Dates: start: 20040324
  4. TYSABRI [Suspect]
     Route: 042
     Dates: start: 20070515, end: 20071102

REACTIONS (3)
  - GENERAL SYMPTOM [None]
  - FEELING ABNORMAL [None]
  - MOBILITY DECREASED [None]
